FAERS Safety Report 9010530 (Version 1)
Quarter: 2013Q1

REPORT INFORMATION
  Report Type: Spontaneous
  Country: IT (occurrence: IT)
  Receive Date: 20130109
  Receipt Date: 20130109
  Transmission Date: 20140127
  Serious: Yes (Hospitalization)
  Sender: FDA-Public Use
  Company Number: IT-JNJFOC-20130101012

PATIENT
  Age: 103 Year
  Sex: Male

DRUGS (2)
  1. REMICADE [Suspect]
     Indication: PSORIASIS
     Dosage: 100 MG STRENGTH
     Route: 042
     Dates: start: 20121221, end: 20121221
  2. OMEPRAZOLE SODIUM [Concomitant]
     Route: 048

REACTIONS (4)
  - Hypertensive crisis [Recovering/Resolving]
  - Dyspnoea [Recovering/Resolving]
  - Erythema [Recovering/Resolving]
  - Infusion related reaction [Recovering/Resolving]
